FAERS Safety Report 5767112-1 (Version None)
Quarter: 2008Q2

REPORT INFORMATION
  Report Type: 
  Country: None (occurrence: None)
  Receive Date: 20080609
  Receipt Date: 20080317
  Transmission Date: 20081010
  Serious: No
  Sender: FDA-Public Use
  Company Number: 002#1#2008-00136

PATIENT
  Sex: Female

DRUGS (3)
  1. NEUPRO [Suspect]
     Indication: PARKINSON'S DISEASE
     Dosage: 6MG/24H,1 IN 1 D,TRANSDERMAL
     Route: 062
     Dates: start: 20071201
  2. MIRAPEX [Concomitant]
  3. WELLBUTRIN [Concomitant]

REACTIONS (1)
  - VISUAL DISTURBANCE [None]
